FAERS Safety Report 6959071-0 (Version None)
Quarter: 2010Q3

REPORT INFORMATION
  Report Type: 
  Country: None (occurrence: None)
  Receive Date: 20100831
  Receipt Date: 20100824
  Transmission Date: 20110219
  Serious: Yes (Hospitalization)
  Sender: FDA-Public Use
  Company Number: CA-AMGEN-KDC429444

PATIENT
  Sex: Male
  Weight: 82.5 kg

DRUGS (11)
  1. PANITUMUMAB [Suspect]
     Indication: NEOPLASM MALIGNANT
     Route: 042
     Dates: start: 20100728
  2. CISPLATIN [Suspect]
  3. METFORMIN HCL [Concomitant]
  4. METFORMIN HCL [Concomitant]
  5. ALTACE [Concomitant]
  6. OXYCODONE [Concomitant]
     Route: 048
     Dates: start: 20090101
  7. ASPIRIN [Concomitant]
  8. ASPIRIN [Concomitant]
  9. LIPITOR [Concomitant]
     Dates: start: 20090101
  10. DILTIAZEM [Concomitant]
  11. KETOROLAC [Concomitant]
     Dates: start: 20090101

REACTIONS (1)
  - ATRIAL FIBRILLATION [None]
